FAERS Safety Report 5648343-8 (Version None)
Quarter: 2008Q1

REPORT INFORMATION
  Report Type: 
  Country: None (occurrence: None)
  Receive Date: 20080131
  Receipt Date: 20071126
  Transmission Date: 20080703
  Serious: No
  Sender: FDA-Public Use
  Company Number: US200711006610

PATIENT
  Age: 46 Year
  Sex: Female
  Weight: 57.1 kg

DRUGS (6)
  1. BYETTA [Suspect]
     Dosage: 5 UG, OTHER, SUBCUTANEOUS ; 10 UG, SUBCUTANEOUS ; 5 UG, OTHER, SUBCUTANEOUS
     Route: 058
     Dates: start: 20050101, end: 20050101
  2. BYETTA [Suspect]
     Dosage: 5 UG, OTHER, SUBCUTANEOUS ; 10 UG, SUBCUTANEOUS ; 5 UG, OTHER, SUBCUTANEOUS
     Route: 058
     Dates: start: 20050101, end: 20050101
  3. BYETTA [Suspect]
     Dosage: 5 UG, OTHER, SUBCUTANEOUS ; 10 UG, SUBCUTANEOUS ; 5 UG, OTHER, SUBCUTANEOUS
     Route: 058
     Dates: start: 20050101
  4. LANTUS [Concomitant]
  5. RAPAMUNE [Concomitant]
  6. PROGRAF [Concomitant]

REACTIONS (5)
  - BLOOD GLUCOSE DECREASED [None]
  - BLOOD GLUCOSE INCREASED [None]
  - DISORIENTATION [None]
  - DRUG EFFECT DECREASED [None]
  - HYPERHIDROSIS [None]
